FAERS Safety Report 23047847 (Version 1)
Quarter: 2023Q4

REPORT INFORMATION
  Report Type: Report from Study
  Country: US (occurrence: US)
  Receive Date: 20231010
  Receipt Date: 20231010
  Transmission Date: 20240110
  Serious: Yes (Other)
  Sender: FDA-Public Use
  Company Number: US-ETON PHARMACEUTICALS, INC-2023ETO000122

PATIENT

DRUGS (4)
  1. ALKINDI SPRINKLE [Suspect]
     Active Substance: HYDROCORTISONE
     Indication: Adrenogenital syndrome
     Dosage: 2MG IN THE MORNING, 1MG IN THE AFTERNOON, AND 1MG AT BEDTIME (4 MG DAILY)
     Route: 048
     Dates: start: 20230313
  2. ALKINDI SPRINKLE [Suspect]
     Active Substance: HYDROCORTISONE
     Dosage: 2MG IN THE MORNING, 1MG IN THE AFTERNOON, AND 1MG AT BEDTIME (4 MG DAILY)
     Route: 048
     Dates: start: 20230313
  3. ALKINDI SPRINKLE [Suspect]
     Active Substance: HYDROCORTISONE
     Dosage: 6 MILLIGRAM (STRESS DOSE)
     Route: 048
     Dates: start: 202306
  4. ZYRTEC [Concomitant]
     Active Substance: CETIRIZINE HYDROCHLORIDE
     Indication: Hypersensitivity
     Dosage: UNK
     Route: 065

REACTIONS (7)
  - Dehydration [Unknown]
  - Vomiting [Unknown]
  - Incorrect dose administered [Unknown]
  - Pyrexia [Recovered/Resolved]
  - Diarrhoea [Recovered/Resolved]
  - Gastrointestinal viral infection [Unknown]
  - Hypoglycaemia [Unknown]

NARRATIVE: CASE EVENT DATE: 20230605
